FAERS Safety Report 4695058-9 (Version None)
Quarter: 2005Q2

REPORT INFORMATION
  Report Type: 
  Country: None (occurrence: None)
  Receive Date: 20050617
  Receipt Date: 20050608
  Transmission Date: 20051028
  Serious: Yes (Death)
  Sender: FDA-Public Use
  Company Number: 2005074554

PATIENT
  Age: 67 Year
  Sex: Male
  Weight: 55 kg

DRUGS (10)
  1. CYCLOKAPRON (IV) (TRANEXAMIC ACID) [Suspect]
     Indication: HAEMORRHAGE
     Dosage: 1100 MG (1 IN 1 D), INTRAVENOUS
     Route: 042
     Dates: start: 20050127, end: 20050127
  2. DICLOXACILLIN SODIUM MONOHYDRATE [Concomitant]
  3. HEXAMYCIN (GENTAMICIN SULFATE) [Concomitant]
  4. ACETAMINOPHEN [Concomitant]
  5. NEXIUM [Concomitant]
  6. INNOHEP [Concomitant]
  7. PREDNISONE [Concomitant]
  8. CENTYL (BENDROFLUMETHIAZIDE) [Concomitant]
  9. BERODUAL (FENOTEROL HYDROBROMIDE, IPRATROPIUM BROMIDE) [Concomitant]
  10. MORPHINE [Concomitant]

REACTIONS (14)
  - BODY TEMPERATURE INCREASED [None]
  - BRADYCARDIA [None]
  - CARDIAC ARREST [None]
  - DRUG INEFFECTIVE [None]
  - DYSPNOEA [None]
  - METABOLIC ACIDOSIS [None]
  - PULMONARY EMBOLISM [None]
  - RESPIRATORY ACIDOSIS [None]
  - RESPIRATORY ARREST [None]
  - RESPIRATORY DISORDER [None]
  - RESPIRATORY FAILURE [None]
  - RESPIRATORY RATE INCREASED [None]
  - SINUS TACHYCARDIA [None]
  - VOMITING [None]
